FAERS Safety Report 4365820-0 (Version None)
Quarter: 2004Q2

REPORT INFORMATION
  Report Type: 
  Country: None (occurrence: None)
  Receive Date: 20040521
  Receipt Date: 20040513
  Transmission Date: 20050107
  Serious: Yes (Hospitalization, Other)
  Sender: FDA-Public Use
  Company Number: ENT 2004-0074

PATIENT
  Age: 76 Year
  Sex: Male

DRUGS (10)
  1. COMTAN [Suspect]
     Indication: DELIRIUM
     Dosage: 3 IN 1 D, ORAL
     Route: 048
  2. COMTAN [Suspect]
     Indication: DEMENTIA
     Dosage: 3 IN 1 D, ORAL
     Route: 048
  3. COMTAN [Suspect]
     Indication: EXTRAPYRAMIDAL DISORDER
     Dosage: 3 IN 1 D, ORAL
     Route: 048
  4. EXELON [Suspect]
     Indication: PARKINSON'S DISEASE
     Dosage: 12 MG, 2 IN 1 D, ORAL
     Route: 048
     Dates: start: 20030301
  5. SINEMET [Suspect]
     Dosage: EVERY 6 HOURS
  6. ZESTRIL [Concomitant]
  7. LANOXIN [Concomitant]
  8. TOPROL-XL [Concomitant]
  9. PROZAC [Concomitant]
  10. ASPIRIN [Concomitant]

REACTIONS (16)
  - CONFUSIONAL STATE [None]
  - DELIRIUM [None]
  - DEMENTIA [None]
  - DEPRESSED LEVEL OF CONSCIOUSNESS [None]
  - DISORIENTATION [None]
  - DIZZINESS [None]
  - DRUG WITHDRAWAL SYNDROME [None]
  - DYSKINESIA [None]
  - EXTRAPYRAMIDAL DISORDER [None]
  - FALL [None]
  - FRACTURED COCCYX [None]
  - GAIT DISTURBANCE [None]
  - HALLUCINATION [None]
  - INSOMNIA [None]
  - MUSCLE RIGIDITY [None]
  - SOMNOLENCE [None]
